FAERS Safety Report 6356741-2 (Version None)
Quarter: 2009Q3

REPORT INFORMATION
  Report Type: 
  Country: None (occurrence: None)
  Receive Date: 20090915
  Receipt Date: 20090904
  Transmission Date: 20100115
  Serious: Yes (Death)
  Sender: FDA-Public Use
  Company Number: JP-BRISTOL-MYERS SQUIBB COMPANY-14764153

PATIENT
  Age: 49 Year
  Sex: Male

DRUGS (10)
  1. ABILIFY [Suspect]
     Indication: SCHIZOPHRENIA
     Route: 048
     Dates: start: 20090811, end: 20090824
  2. ANAFRANIL [Suspect]
     Indication: ENURESIS
     Dosage: TAKEN AS TABS
     Route: 048
     Dates: start: 20090819, end: 20090824
  3. HALOPERIDOL [Suspect]
     Indication: SCHIZOPHRENIA
     Dosage: TAKEN AS TABS 3MG
     Route: 048
     Dates: start: 19880101, end: 20090824
  4. LULLAN [Suspect]
     Indication: SCHIZOPHRENIA
     Dosage: HCL,FORMULATION:TABS 8MG
     Route: 048
     Dates: start: 20030828, end: 20090824
  5. LEVOMEPROMAZINE MALEATE [Suspect]
     Indication: SCHIZOPHRENIA
     Dosage: TABLET 50MG
     Route: 048
     Dates: start: 19880101, end: 20090824
  6. LORAZEPAM [Concomitant]
     Dosage: FORMULATION:TABS
     Dates: start: 20080902, end: 20090824
  7. TRIHEXYPHENIDYL HCL [Concomitant]
     Dosage: TABLET
     Dates: start: 19970101, end: 20090824
  8. TRIAZOLAM [Concomitant]
     Dosage: TABLET
     Dates: start: 19980101, end: 20090824
  9. FLUNITRAZEPAM [Concomitant]
     Dosage: TABLET
     Dates: start: 20090714, end: 20090824
  10. SENNAL [Concomitant]
     Dosage: FORMULATION:TABS
     Dates: start: 19880101, end: 20090824

REACTIONS (1)
  - CARDIAC FAILURE ACUTE [None]
